FAERS Safety Report 10364645 (Version 1)
Quarter: 2014Q3

REPORT INFORMATION
  Report Type: Spontaneous
  Country: DE (occurrence: DE)
  Receive Date: 20140806
  Receipt Date: 20140806
  Transmission Date: 20150326
  Serious: Yes (Other)
  Sender: FDA-Public Use
  Company Number: PHHY2014DE094915

PATIENT
  Sex: Male

DRUGS (2)
  1. ZOMETA [Suspect]
     Active Substance: ZOLEDRONIC ACID
     Dosage: UNK UKN, EVERY 3 MONTHS
  2. TRENANTONE [Concomitant]
     Active Substance: LEUPROLIDE ACETATE
     Dosage: UNK UKN, UNK

REACTIONS (5)
  - Erythema [Unknown]
  - Pigmentation disorder [Unknown]
  - Reactive perforating collagenosis [Unknown]
  - Skin disorder [Unknown]
  - Rash [Unknown]
